FAERS Safety Report 7125916-7 (Version None)
Quarter: 2010Q4

REPORT INFORMATION
  Report Type: 
  Country: None (occurrence: None)
  Receive Date: 20101129
  Receipt Date: 20101117
  Transmission Date: 20110411
  Serious: Yes (Hospitalization)
  Sender: FDA-Public Use
  Company Number: US-JNJFOC-20101106433

PATIENT
  Sex: Female

DRUGS (4)
  1. DURAGESIC-100 [Suspect]
     Indication: CANCER PAIN
     Dosage: 100UG/HR+25UG/HR
     Route: 062
  2. DURAGESIC-100 [Suspect]
     Route: 062
  3. CORTONE [Concomitant]
     Indication: BRAIN NEOPLASM MALIGNANT
     Route: 048
  4. NEXIUM [Concomitant]
     Route: 048

REACTIONS (6)
  - DEHYDRATION [None]
  - DRUG INEFFECTIVE [None]
  - PAIN [None]
  - PANCREATITIS [None]
  - PRODUCT QUALITY ISSUE [None]
  - VOMITING [None]
